FAERS Safety Report 12449166 (Version 1)
Quarter: 2016Q2

REPORT INFORMATION
  Report Type: Spontaneous
  Country: US (occurrence: US)
  Receive Date: 20160608
  Receipt Date: 20160608
  Transmission Date: 20160815
  Serious: No
  Sender: FDA-Public Use
  Company Number: US-PFIZER INC-2016265119

PATIENT
  Age: 79 Year
  Sex: Male

DRUGS (2)
  1. NEURONTIN [Suspect]
     Active Substance: GABAPENTIN
     Indication: DIABETIC NEUROPATHY
     Dosage: 100 MG OR SOMETHING
  2. NEURONTIN [Suspect]
     Active Substance: GABAPENTIN
     Dosage: 400 MG, 6 TIMES A DAY

REACTIONS (1)
  - Drug ineffective for unapproved indication [Unknown]
